FAERS Safety Report 16333518 (Version 3)
Quarter: 2020Q3

REPORT INFORMATION
  Report Type: Report from Study
  Country: US (occurrence: US)
  Receive Date: 20190520
  Receipt Date: 20200930
  Transmission Date: 20201102
  Serious: Yes (Other)
  Sender: FDA-Public Use
  Company Number: US-ALEXION PHARMACEUTICALS INC.-A201907396

PATIENT
  Sex: Male

DRUGS (1)
  1. SOLIRIS [Suspect]
     Active Substance: ECULIZUMAB
     Indication: MYASTHENIA GRAVIS
     Route: 065

REACTIONS (10)
  - Pruritus [Unknown]
  - Hyperhidrosis [Unknown]
  - Insomnia [Recovered/Resolved]
  - Nephrolithiasis [Recovered/Resolved]
  - Asthenia [Unknown]
  - Laboratory test abnormal [Unknown]
  - Temperature intolerance [Unknown]
  - Anaemia [Unknown]
  - Atrophy [Unknown]
  - Fatigue [Unknown]
